FAERS Safety Report 5750597-4 (Version None)
Quarter: 2008Q2

REPORT INFORMATION
  Report Type: 
  Country: None (occurrence: None)
  Receive Date: 20080528
  Receipt Date: 20080526
  Transmission Date: 20081010
  Serious: Yes (Other)
  Sender: FDA-Public Use
  Company Number: PT-WYE-G01586308

PATIENT
  Sex: Male
  Weight: 60 kg

DRUGS (8)
  1. TYGACIL [Suspect]
     Indication: PNEUMONIA
     Dosage: 100 MG/DAY
     Route: 042
     Dates: start: 20080407, end: 20080418
  2. OMEPRAZOLE [Concomitant]
  3. FUROSEMIDE [Concomitant]
  4. ALFENTANIL [Concomitant]
  5. ACETYLSALICYLIC ACID SRT [Concomitant]
  6. GENTAMICIN [Concomitant]
  7. HEPARIN-FRACTION, SODIUM SALT [Concomitant]
  8. MIDAZOLAM HCL [Concomitant]

REACTIONS (2)
  - CHOLESTASIS [None]
  - HEPATIC NECROSIS [None]
